FAERS Safety Report 7970194-X (Version None)
Quarter: 2011Q4

REPORT INFORMATION
  Report Type: 
  Country: None (occurrence: None)
  Receive Date: 20111212
  Receipt Date: 20111205
  Transmission Date: 20120403
  Serious: Yes (Death)
  Sender: FDA-Public Use
  Company Number: JP-ASTELLAS-2011JP009043

PATIENT
  Age: 19 Year
  Sex: Male

DRUGS (9)
  1. METHOTREXATE [Concomitant]
     Indication: PROPHYLAXIS AGAINST GRAFT VERSUS HOST DISEASE
     Route: 042
  2. CYCLOPHOSPHAMIDE [Concomitant]
     Route: 065
  3. ANTI-THYMOCYTE GLOBULIN NOS [Concomitant]
     Route: 065
  4. PREDNISOLONE [Concomitant]
     Indication: PROPHYLAXIS AGAINST GRAFT VERSUS HOST DISEASE
     Dosage: 1 MG/KG, UNKNOWN/D
     Route: 065
  5. FLUDARABINE PHOSPHATE [Concomitant]
     Route: 065
  6. MELPHALAN HYDROCHLORIDE [Concomitant]
     Route: 065
  7. PROGRAF [Suspect]
     Route: 048
  8. PROGRAF [Suspect]
     Indication: PROPHYLAXIS AGAINST GRAFT VERSUS HOST DISEASE
     Route: 042
  9. BUSULFAN [Concomitant]
     Route: 065

REACTIONS (2)
  - DRUG INEFFECTIVE [None]
  - ACUTE GRAFT VERSUS HOST DISEASE [None]
